FAERS Safety Report 4301874-5 (Version None)
Quarter: 2004Q1

REPORT INFORMATION
  Report Type: 
  Country: None (occurrence: None)
  Receive Date: 20040223
  Receipt Date: 20040203
  Transmission Date: 20041129
  Serious: Yes (Death)
  Sender: FDA-Public Use
  Company Number: WAES 0402USA00376

PATIENT
  Age: 79 Year
  Sex: Female

DRUGS (11)
  1. FOSAMAX [Suspect]
     Indication: OSTEOPOROSIS
     Route: 048
  2. NORVASC [Concomitant]
     Indication: HYPERTENSION
     Route: 048
  3. ASPIRIN [Concomitant]
     Indication: PROPHYLAXIS
     Route: 048
     Dates: start: 20040131
  4. DIAZEPAM [Concomitant]
     Indication: HYPERTENSION
     Route: 048
  5. COMELIAN [Concomitant]
     Indication: HYPERTENSION
     Route: 048
  6. DOPS [Concomitant]
     Route: 048
  7. TOFRANIL [Concomitant]
     Route: 048
  8. GASLON [Concomitant]
     Indication: PROPHYLAXIS
     Route: 048
     Dates: start: 20040131
  9. DOPAR [Concomitant]
     Route: 048
  10. BAYMYCARD [Concomitant]
     Route: 048
  11. SELBEX [Concomitant]
     Route: 048

REACTIONS (3)
  - ACUTE MYOCARDIAL INFARCTION [None]
  - CARDIO-RESPIRATORY ARREST [None]
  - PULMONARY INFARCTION [None]
